FAERS Safety Report 8606034-5 (Version None)
Quarter: 2012Q3

REPORT INFORMATION
  Report Type: 
  Country: None (occurrence: None)
  Receive Date: 20120809
  Receipt Date: 20120809
  Transmission Date: 20120928
  Serious: No
  Sender: FDA-Public Use
  Company Number: None

PATIENT
  Age: 58 Year
  Sex: Male
  Weight: 159 kg

DRUGS (1)
  1. VANCOMYCIN [Suspect]
     Dosage: 1500 MG TID IV
     Route: 042
     Dates: start: 20120711, end: 20120712

REACTIONS (2)
  - TUBULOINTERSTITIAL NEPHRITIS [None]
  - NEPHRITIS [None]
